FAERS Safety Report 17539929 (Version 1)
Quarter: 2020Q1

REPORT INFORMATION
  Report Type: Spontaneous
  Country: IL (occurrence: IL)
  Receive Date: 20200313
  Receipt Date: 20200313
  Transmission Date: 20200409
  Serious: Yes (Death, Hospitalization)
  Sender: FDA-Public Use
  Company Number: NVSC2020IL072349

PATIENT
  Age: 11 Year
  Sex: Female

DRUGS (1)
  1. KYMRIAH [Suspect]
     Active Substance: TISAGENLECLEUCEL
     Indication: ACUTE LYMPHOCYTIC LEUKAEMIA
     Dosage: UNK, ONCE/SINGLE
     Route: 065
     Dates: start: 20191215

REACTIONS (5)
  - Anaemia [Not Recovered/Not Resolved]
  - Death [Fatal]
  - Bone marrow failure [Unknown]
  - Cytokine release syndrome [Recovered/Resolved]
  - Sepsis [Recovered/Resolved]
